FAERS Safety Report 15712392 (Version 1)
Quarter: 2018Q4

REPORT INFORMATION
  Report Type: Spontaneous
  Country: GB (occurrence: GB)
  Receive Date: 20181212
  Receipt Date: 20181212
  Transmission Date: 20190205
  Serious: Yes (Hospitalization)
  Sender: FDA-Public Use
  Company Number: GB-TEVA-2018-GB-985603

PATIENT
  Age: 58 Year
  Sex: Male

DRUGS (6)
  1. LANSOPRAZOLE. [Concomitant]
     Active Substance: LANSOPRAZOLE
  2. LOSARTAN. [Concomitant]
     Active Substance: LOSARTAN
  3. ACTAVIS GROUP PTC FINASTERIDE [Suspect]
     Active Substance: FINASTERIDE
     Indication: ALOPECIA
     Dosage: 1 MILLIGRAM DAILY;
     Route: 048
     Dates: start: 20181010, end: 20181024
  4. FELODIPINE. [Concomitant]
     Active Substance: FELODIPINE
  5. INDAPAMIDE. [Concomitant]
     Active Substance: INDAPAMIDE
  6. ATORVASTATIN [Concomitant]
     Active Substance: ATORVASTATIN

REACTIONS (6)
  - Product substitution issue [Unknown]
  - Pruritus [Unknown]
  - Ear swelling [Unknown]
  - Rash [Unknown]
  - Hypersensitivity [Recovered/Resolved]
  - Eye swelling [Unknown]
